FAERS Safety Report 16030475 (Version 1)
Quarter: 2019Q1

REPORT INFORMATION
  Report Type: Spontaneous
  Country: US (occurrence: US)
  Receive Date: 20190302
  Receipt Date: 20190302
  Transmission Date: 20190418
  Serious: No
  Sender: FDA-Public Use
  Company Number: None

PATIENT
  Age: 47 Year
  Sex: Female
  Weight: 76.5 kg

DRUGS (3)
  1. BUPROPION XL [Concomitant]
     Active Substance: BUPROPION
  2. XOFLUZA [Suspect]
     Active Substance: BALOXAVIR MARBOXIL
     Indication: INFLUENZA A VIRUS TEST POSITIVE
     Dosage: ?          QUANTITY:1 TABLET(S);OTHER FREQUENCY:ONCE;?
     Route: 048
     Dates: start: 20190222, end: 20190222
  3. ASPIRIN. [Concomitant]
     Active Substance: ASPIRIN

REACTIONS (4)
  - Feeling abnormal [None]
  - Memory impairment [None]
  - Aphasia [None]
  - Pyrexia [None]

NARRATIVE: CASE EVENT DATE: 20190225
